FAERS Safety Report 5773972-0 (Version None)
Quarter: 2008Q2

REPORT INFORMATION
  Report Type: 
  Country: None (occurrence: None)
  Receive Date: 20080616
  Receipt Date: 20080606
  Transmission Date: 20081010
  Serious: Yes (Hospitalization, Other)
  Sender: FDA-Public Use
  Company Number: DE-ABBOTT-08P-062-0456298-00

PATIENT
  Age: 39 Year
  Sex: Female

DRUGS (2)
  1. AVONEX [Suspect]
     Indication: MULTIPLE SCLEROSIS
     Route: 030
     Dates: start: 20001201
  2. AVONEX [Suspect]
     Route: 030

REACTIONS (12)
  - ABDOMINAL DISTENSION [None]
  - ABDOMINAL PAIN [None]
  - ASCITES [None]
  - CONSTIPATION [None]
  - IMMOBILE [None]
  - NAUSEA [None]
  - PERITONITIS [None]
  - SMALL INTESTINAL PERFORATION [None]
  - SMALL INTESTINE GANGRENE [None]
  - UMBILICAL HERNIA [None]
  - VOMITING [None]
  - WHEELCHAIR USER [None]
